FAERS Safety Report 24584568 (Version 1)
Quarter: 2024Q4

REPORT INFORMATION
  Report Type: Spontaneous
  Country: US (occurrence: None)
  Receive Date: 20241106
  Receipt Date: 20241106
  Transmission Date: 20250114
  Serious: Yes (Hospitalization)
  Sender: Public
  Company Number: None

PATIENT
  Sex: Female

DRUGS (2)
  1. HUMIRA [Suspect]
     Active Substance: ADALIMUMAB
     Indication: Rheumatoid arthritis
     Dosage: 40MG  UNDER THE SKIN Q 14 DAYS
     Route: 042
     Dates: start: 202003
  2. LEVAQUIN [Suspect]
     Active Substance: LEVOFLOXACIN

REACTIONS (5)
  - Sepsis [None]
  - Pain [None]
  - Tendon rupture [None]
  - Therapy interrupted [None]
  - Therapy change [None]
